FAERS Safety Report 13096775 (Version 2)
Quarter: 2017Q1

REPORT INFORMATION
  Report Type: Spontaneous
  Country: US (occurrence: US)
  Receive Date: 20170109
  Receipt Date: 20170127
  Transmission Date: 20170428
  Serious: Yes (Hospitalization, Other)
  Sender: FDA-Public Use
  Company Number: US-HQ SPECIALTY-US-2016INT001009

PATIENT
  Age: 76 Year
  Sex: Female

DRUGS (1)
  1. CISPLATIN. [Suspect]
     Active Substance: CISPLATIN
     Indication: SQUAMOUS CELL CARCINOMA OF THE VULVA
     Dosage: UNK

REACTIONS (4)
  - Urogenital fistula [Not Recovered/Not Resolved]
  - Bladder outlet obstruction [Not Recovered/Not Resolved]
  - Decubitus ulcer [Recovering/Resolving]
  - Radiation skin injury [Recovered/Resolved]
